FAERS Safety Report 9546471 (Version 1)
Quarter: 2013Q3

REPORT INFORMATION
  Report Type: Spontaneous
  Country: US (occurrence: US)
  Receive Date: 20130923
  Receipt Date: 20130923
  Transmission Date: 20140515
  Serious: No
  Sender: FDA-Public Use
  Company Number: US-009507513-1309USA008002

PATIENT
  Sex: Female

DRUGS (2)
  1. PEGINTRON [Suspect]
     Dosage: UNK
     Dates: start: 20130915
  2. REBETOL [Suspect]
     Dosage: UNK
     Dates: start: 20130915

REACTIONS (1)
  - Migraine [Unknown]
